FAERS Safety Report 20326763 (Version 1)
Quarter: 2022Q1

REPORT INFORMATION
  Report Type: Spontaneous
  Country: US (occurrence: None)
  Receive Date: 20220111
  Receipt Date: 20220111
  Transmission Date: 20220423
  Serious: No
  Sender: FDA-Public Use
  Company Number: None

PATIENT
  Age: 82 Year
  Sex: Female

DRUGS (2)
  1. SUNITINIB [Suspect]
     Active Substance: SUNITINIB
     Indication: Malignant connective tissue neoplasm
     Dosage: OTHER FREQUENCY : 50 PRES. FOR  25MG;?
     Route: 048
     Dates: start: 202011
  2. SUNITINIB [Suspect]
     Active Substance: SUNITINIB
     Indication: Soft tissue sarcoma
     Dates: start: 202011

REACTIONS (3)
  - Nonspecific reaction [None]
  - Hypertension [None]
  - Fall [None]

NARRATIVE: CASE EVENT DATE: 20211228
